FAERS Safety Report 10798991 (Version 1)
Quarter: 2015Q1

REPORT INFORMATION
  Report Type: Spontaneous
  Country: US (occurrence: US)
  Receive Date: 20150216
  Receipt Date: 20150216
  Transmission Date: 20150721
  Serious: No
  Sender: FDA-Public Use
  Company Number: US-ALLERGAN-1404608US

PATIENT
  Age: 56 Year
  Sex: Female

DRUGS (3)
  1. RENEW [Concomitant]
     Indication: EYE LUBRICATION THERAPY
     Dosage: UNK
  2. RESTASIS [Suspect]
     Active Substance: CYCLOSPORINE
     Indication: PRODUCT USED FOR UNKNOWN INDICATION
     Dosage: 2 GTT, BID
     Route: 047
  3. RESTASIS [Suspect]
     Active Substance: CYCLOSPORINE
     Dosage: 2 GTT, BID
     Route: 047

REACTIONS (6)
  - Dry eye [Not Recovered/Not Resolved]
  - Scleral hyperaemia [Recovered/Resolved]
  - Multiple use of single-use product [Unknown]
  - Eye irritation [Unknown]
  - Therapeutic response decreased [Unknown]
  - Drug dose omission [Unknown]
